FAERS Safety Report 25981054 (Version 1)
Quarter: 2025Q4

REPORT INFORMATION
  Report Type: Spontaneous
  Country: IL (occurrence: IL)
  Receive Date: 20251030
  Receipt Date: 20251030
  Transmission Date: 20260118
  Serious: Yes (Life-Threatening)
  Sender: PFIZER
  Company Number: IL-TAKEDA-2025TUS095484

PATIENT
  Age: 34 Year
  Sex: Female

DRUGS (1)
  1. CONTROLOC [Suspect]
     Active Substance: PANTOPRAZOLE SODIUM
     Dosage: 40
     Route: 065
     Dates: start: 20230517

REACTIONS (3)
  - Hypoglycaemia [Unknown]
  - Blood insulin increased [Unknown]
  - Anti-insulin antibody increased [Unknown]
